FAERS Safety Report 17144690 (Version 1)
Quarter: 2019Q4

REPORT INFORMATION
  Report Type: Report from Study
  Country: IT (occurrence: IT)
  Receive Date: 20191212
  Receipt Date: 20191212
  Transmission Date: 20200122
  Serious: Yes (Hospitalization)
  Sender: FDA-Public Use
  Company Number: IT-MYLANLABS-2019M1120720

PATIENT
  Age: 82 Year
  Sex: Male

DRUGS (8)
  1. TORVAST [Concomitant]
     Active Substance: ATORVASTATIN
     Dosage: 1 DOSAGE FORM
     Route: 048
  2. FUROSEMIDE. [Concomitant]
     Active Substance: FUROSEMIDE
     Dosage: 25 MILLIGRAM
     Route: 048
  3. KANRENOL [Suspect]
     Active Substance: CANRENOATE POTASSIUM
     Indication: HYPOKALAEMIA
     Dosage: 1 DOSAGE FORM, QD
     Route: 048
  4. OLPREZIDE [Suspect]
     Active Substance: HYDROCHLOROTHIAZIDE\OLMESARTAN MEDOXOMIL
     Indication: HYPERTENSION
     Dosage: 1 DOSAGE FORM, QD
     Route: 048
  5. ALFUZOSIN HYDROCHLORIDE. [Concomitant]
     Active Substance: ALFUZOSIN HYDROCHLORIDE
     Dosage: 10 MILLIGRAM
     Route: 048
  6. CATAPRESAN                         /00171101/ [Concomitant]
     Active Substance: CLONIDINE
     Dosage: 2 DOSAGE FORM
     Route: 048
  7. BISOPROLOL [Suspect]
     Active Substance: BISOPROLOL
     Indication: CARDIAC FAILURE
     Dosage: 1 DOSAGE FORM, QD
     Route: 048
  8. VASEXTEN [Concomitant]
     Active Substance: BARNIDIPINE HYDROCHLORIDE
     Dosage: 1 DOSAGE FORM
     Route: 048

REACTIONS (4)
  - Anaemia [Recovered/Resolved]
  - Thrombocytopenia [Recovered/Resolved]
  - Hyperkalaemia [Recovered/Resolved]
  - Sinus bradycardia [Recovered/Resolved]

NARRATIVE: CASE EVENT DATE: 20190611
